FAERS Safety Report 16564881 (Version 1)
Quarter: 2019Q3

REPORT INFORMATION
  Report Type: Spontaneous
  Country: US (occurrence: US)
  Receive Date: 20190711
  Receipt Date: 20190711
  Transmission Date: 20191004
  Serious: Yes (Disabling)
  Sender: FDA-Public Use
  Company Number: None

PATIENT
  Age: 43 Year
  Sex: Male
  Weight: 85.5 kg

DRUGS (1)
  1. METRONIDAZOLE. [Suspect]
     Active Substance: METRONIDAZOLE
     Indication: CLOSTRIDIUM DIFFICILE INFECTION
     Dosage: ?          QUANTITY:2 TABLET(S);?
     Route: 048

REACTIONS (15)
  - Toxicity to various agents [None]
  - Anxiety [None]
  - Feeling abnormal [None]
  - Gastrointestinal disorder [None]
  - Loss of employment [None]
  - Visual acuity reduced [None]
  - Loss of personal independence in daily activities [None]
  - Derealisation [None]
  - Memory impairment [None]
  - Fatigue [None]
  - Blood pressure increased [None]
  - Insomnia [None]
  - Heart rate increased [None]
  - Muscle twitching [None]
  - Muscular weakness [None]

NARRATIVE: CASE EVENT DATE: 20150615
